FAERS Safety Report 11877664 (Version 1)
Quarter: 2015Q4

REPORT INFORMATION
  Report Type: Spontaneous
  Country: ES (occurrence: ES)
  Receive Date: 20151230
  Receipt Date: 20151230
  Transmission Date: 20160305
  Serious: Yes (Other)
  Sender: FDA-Public Use
  Company Number: ES-MYLANLABS-2015M1047161

PATIENT

DRUGS (4)
  1. DOBUTAMINE [Concomitant]
     Active Substance: DOBUTAMINE\DOBUTAMINE HYDROCHLORIDE
     Dosage: TITRATED UP TO 40 MICROG/KG/MIN
     Route: 050
  2. ESMOLOL [Suspect]
     Active Substance: ESMOLOL HYDROCHLORIDE
     Indication: SINUS TACHYCARDIA
     Dosage: 10 MG, UNK
     Route: 042
  3. DOBUTAMINE [Concomitant]
     Active Substance: DOBUTAMINE\DOBUTAMINE HYDROCHLORIDE
     Indication: PRODUCT USED FOR UNKNOWN INDICATION
     Dosage: INITIAL PERFUSION OF 5 MICROG/KG/MINUTE; TITRATED UP TO 40 MICROG/KG/MIN
     Route: 050
  4. ATROPINE. [Concomitant]
     Active Substance: ATROPINE
     Indication: PRODUCT USED FOR UNKNOWN INDICATION
     Dosage: 1 MG, UNK
     Route: 042

REACTIONS (1)
  - Arteriospasm coronary [Recovered/Resolved]
